FAERS Safety Report 4816438-4 (Version None)
Quarter: 2005Q4

REPORT INFORMATION
  Report Type: 
  Country: None (occurrence: None)
  Receive Date: 20051028
  Receipt Date: 20051024
  Transmission Date: 20060501
  Serious: Yes (Other)
  Sender: FDA-Public Use
  Company Number: 2005-132056-NL

PATIENT
  Age: 35 Year
  Sex: Male

DRUGS (11)
  1. VECURONIUM BROMIDE [Suspect]
     Indication: MUSCLE RELAXANT THERAPY
     Dosage: 20 MG ONCE, INTRAVENOUS (NOS)
     Route: 042
     Dates: start: 20050809, end: 20050809
  2. FENTANYL CITRATE [Suspect]
     Indication: ANALGESIC EFFECT
     Dosage: 0.05 MG BID, INTRAVENOUS (NOS)
     Route: 042
     Dates: start: 20050809, end: 20050809
  3. PROPOFOL [Suspect]
     Indication: ANAESTHESIA
     Dosage: 1200 MG ONCE, INTRAVENOUS DRIP
     Route: 041
     Dates: start: 20050809, end: 20050809
  4. CEFAZOLIN SODIUM [Suspect]
     Indication: INFECTION PROPHYLAXIS
     Dosage: 1 G ONCE, INTRAVENOUS DRIP
     Route: 041
     Dates: start: 20050809, end: 20050809
  5. FAMOTIDINE [Suspect]
     Indication: ANAESTHETIC PREMEDICATION
     Dosage: 20 MG ONCE, INTRAVENOUS DRIP
     Route: 041
     Dates: start: 20050809, end: 20050809
  6. BUPIVACAINE HCL [Suspect]
     Indication: ANAESTHESIA
     Dosage: 25 ML ONCE, EPIDURAL
     Route: 008
     Dates: start: 20050809, end: 20050809
  7. MORPHINE [Concomitant]
  8. LIDOCAINE [Concomitant]
  9. ATROPINE SULFATE [Concomitant]
  10. NEOSTIGMINE  METILSULFATE [Concomitant]
  11. PIPERACILLIN SODIUM [Concomitant]

REACTIONS (2)
  - HEPATIC FUNCTION ABNORMAL [None]
  - POST PROCEDURAL COMPLICATION [None]
